FAERS Safety Report 6026839-7 (Version None)
Quarter: 2009Q1

REPORT INFORMATION
  Report Type: 
  Country: None (occurrence: None)
  Receive Date: 20090105
  Receipt Date: 20081223
  Transmission Date: 20090719
  Serious: Yes (Other)
  Sender: FDA-Public Use
  Company Number: US-NOVOPROD-282656

PATIENT
  Sex: Male

DRUGS (2)
  1. LEVEMIR [Suspect]
     Indication: INSULIN-REQUIRING TYPE 2 DIABETES MELLITUS
     Dosage: 64 IU, QD
     Route: 058
     Dates: start: 20081201, end: 20081201
  2. NOVOLOG [Suspect]
     Indication: INSULIN-REQUIRING TYPE 2 DIABETES MELLITUS
     Dosage: SLIDING SCALE
     Route: 058
     Dates: start: 20080507

REACTIONS (5)
  - CONVULSION [None]
  - DRUG HYPERSENSITIVITY [None]
  - LOSS OF CONSCIOUSNESS [None]
  - PRURITUS [None]
  - URTICARIA [None]
